FAERS Safety Report 23091327 (Version 3)
Quarter: 2024Q2

REPORT INFORMATION
  Report Type: Spontaneous
  Country: CA (occurrence: CA)
  Receive Date: 20231020
  Receipt Date: 20240408
  Transmission Date: 20240716
  Serious: Yes (Hospitalization, Other)
  Sender: FDA-Public Use
  Company Number: CA-SA-2020SA142502

PATIENT
  Age: 50 Year
  Sex: Female

DRUGS (9)
  1. CAPSAICIN [Suspect]
     Active Substance: CAPSAICIN
     Indication: Complex regional pain syndrome
     Dosage: DOSE DESCRIPTION : UNK
     Route: 061
  2. CAPSAICIN [Suspect]
     Active Substance: CAPSAICIN
     Dosage: UNK
     Route: 065
  3. ASPERCREME LIDOCAINE WITH EUCALYPTUS ESSENTIAL OIL [Suspect]
     Active Substance: LIDOCAINE HYDROCHLORIDE
     Indication: Complex regional pain syndrome
     Dosage: DOSE DESCRIPTION : UNK
     Route: 042
  4. ASPERCREME LIDOCAINE WITH EUCALYPTUS ESSENTIAL OIL [Suspect]
     Active Substance: LIDOCAINE HYDROCHLORIDE
     Route: 061
  5. ASPERCREME LIDOCAINE WITH EUCALYPTUS ESSENTIAL OIL [Suspect]
     Active Substance: LIDOCAINE HYDROCHLORIDE
     Dosage: UNK
     Route: 065
  6. ASPERCREME LIDOCAINE WITH EUCALYPTUS ESSENTIAL OIL [Suspect]
     Active Substance: LIDOCAINE HYDROCHLORIDE
     Route: 065
  7. RIBOFLAVIN [Suspect]
     Active Substance: RIBOFLAVIN
     Indication: Complex regional pain syndrome
     Dosage: UNK
     Route: 065
  8. RIBOFLAVIN [Suspect]
     Active Substance: RIBOFLAVIN
     Indication: Migraine prophylaxis
  9. ASCORBIC ACID [Suspect]
     Active Substance: ASCORBIC ACID
     Indication: Complex regional pain syndrome
     Route: 065

REACTIONS (21)
  - Contusion [Recovered/Resolved]
  - Bone density decreased [Recovered/Resolved]
  - Cataract [Recovered/Resolved]
  - Hyperlipidaemia [Recovered/Resolved]
  - Impaired quality of life [Recovered/Resolved]
  - Impaired work ability [Recovered/Resolved]
  - Poor quality sleep [Recovered/Resolved]
  - Skin disorder [Recovered/Resolved]
  - Fatigue [Recovered/Resolved]
  - Body tinea [Recovered/Resolved]
  - Cellulitis [Recovered/Resolved]
  - Herpes zoster [Recovered/Resolved]
  - Infection susceptibility increased [Recovered/Resolved]
  - Oral herpes [Recovered/Resolved]
  - Purpura [Recovered/Resolved]
  - Glucose tolerance impaired [Recovered/Resolved]
  - Weight increased [Recovered/Resolved]
  - Hypertension [Recovered/Resolved]
  - Insomnia [Recovered/Resolved]
  - Inhibitory drug interaction [Recovered/Resolved]
  - Drug ineffective [Unknown]
